FAERS Safety Report 18419365 (Version 1)
Quarter: 2020Q4

REPORT INFORMATION
  Report Type: Spontaneous
  Country: AU (occurrence: AU)
  Receive Date: 20201023
  Receipt Date: 20201023
  Transmission Date: 20210114
  Serious: Yes (Other)
  Sender: FDA-Public Use
  Company Number: AU-BEH-2020123748

PATIENT
  Sex: Female

DRUGS (5)
  1. BERINERT [Suspect]
     Active Substance: HUMAN C1-ESTERASE INHIBITOR
     Indication: PROPHYLAXIS
     Dosage: 1000 INTERNATIONAL UNIT, PRN
     Route: 042
  2. BERINERT [Suspect]
     Active Substance: HUMAN C1-ESTERASE INHIBITOR
     Indication: HEREDITARY ANGIOEDEMA
     Dosage: 1500 INTERNATIONAL UNIT, BIW
     Route: 042
  3. BERINERT [Suspect]
     Active Substance: HUMAN C1-ESTERASE INHIBITOR
     Indication: HEREDITARY ANGIOEDEMA
     Route: 058
  4. BERINERT [Suspect]
     Active Substance: HUMAN C1-ESTERASE INHIBITOR
     Indication: HEREDITARY ANGIOEDEMA
     Dosage: 1500 INTERNATIONAL UNIT, BIW
     Route: 042
  5. BERINERT [Suspect]
     Active Substance: HUMAN C1-ESTERASE INHIBITOR
     Indication: PROPHYLAXIS
     Dosage: 1000 INTERNATIONAL UNIT, PRN
     Route: 042

REACTIONS (8)
  - Drug ineffective [Unknown]
  - Hereditary angioedema [Unknown]
  - Pain [Unknown]
  - No adverse event [Unknown]
  - Sensitive skin [Unknown]
  - Product use in unapproved indication [Unknown]
  - Stress [Unknown]
  - Intentional product use issue [Unknown]
